FAERS Safety Report 14141069 (Version 4)
Quarter: 2018Q1

REPORT INFORMATION
  Report Type: Spontaneous
  Country: JP (occurrence: JP)
  Receive Date: 20171030
  Receipt Date: 20180222
  Transmission Date: 20180508
  Serious: Yes (Death, Hospitalization)
  Sender: FDA-Public Use
  Company Number: JP-BAYER-2017-201951

PATIENT
  Age: 51 Year
  Sex: Female
  Weight: 160 kg

DRUGS (5)
  1. CIPROFLOXACIN HYDROCHLORIDE. [Suspect]
     Active Substance: CIPROFLOXACIN HYDROCHLORIDE
     Indication: ATYPICAL MYCOBACTERIAL INFECTION
  2. AVELOX [Suspect]
     Active Substance: MOXIFLOXACIN HYDROCHLORIDE
     Dosage: UNK
  3. ERYTHROMYCIN. [Concomitant]
     Active Substance: ERYTHROMYCIN
  4. CIPROFLOXACIN HYDROCHLORIDE. [Suspect]
     Active Substance: CIPROFLOXACIN HYDROCHLORIDE
     Indication: PSEUDOMONAS INFECTION
     Dosage: DAILY DOSE 300 MG
     Dates: start: 201506, end: 2015
  5. RIFAMPICIN [Concomitant]
     Active Substance: RIFAMPIN

REACTIONS (1)
  - Renal impairment [None]

NARRATIVE: CASE EVENT DATE: 20160601
